FAERS Safety Report 9037918 (Version 1)
Quarter: 2013Q1

REPORT INFORMATION
  Report Type: Spontaneous
  Country: US (occurrence: US)
  Receive Date: 20130129
  Receipt Date: 20130129
  Transmission Date: 20140127
  Serious: No
  Sender: FDA-Public Use
  Company Number: US-BRISTOL-MYERS SQUIBB COMPANY-17193251

PATIENT
  Age: 89 Year
  Sex: Female

DRUGS (1)
  1. AZACTAM [Suspect]
     Route: 042

REACTIONS (1)
  - Incorrect storage of drug [Unknown]
